FAERS Safety Report 9085855 (Version 1)
Quarter: 2013Q1

REPORT INFORMATION
  Report Type: Spontaneous
  Country: US (occurrence: US)
  Receive Date: 20130201
  Receipt Date: 20130201
  Transmission Date: 20140127
  Serious: No
  Sender: FDA-Public Use
  Company Number: US-PFIZER INC-2013041128

PATIENT
  Age: 40 Year
  Sex: Female
  Weight: 133.79 kg

DRUGS (5)
  1. LYRICA [Suspect]
     Indication: DIABETIC NEUROPATHY
     Dosage: 50 MG, 2X/DAY
     Route: 048
     Dates: start: 20130122
  2. CELEXA [Concomitant]
     Indication: BIPOLAR DISORDER
     Dosage: 20 MG, UNK
  3. CELEXA [Concomitant]
     Indication: DEPRESSION
  4. ABILIFY [Concomitant]
     Indication: BIPOLAR DISORDER
     Dosage: 15 MG, 1X/DAY
  5. ABILIFY [Concomitant]
     Indication: DEPRESSION

REACTIONS (1)
  - Depression [Unknown]
